FAERS Safety Report 7409704-X (Version None)
Quarter: 2011Q2

REPORT INFORMATION
  Report Type: 
  Country: None (occurrence: None)
  Receive Date: 20110412
  Receipt Date: 20110331
  Transmission Date: 20111010
  Serious: Yes (Death, Other)
  Sender: FDA-Public Use
  Company Number: FR-MPIJNJ-2010-06171

PATIENT

DRUGS (9)
  1. MELPHALAN [Concomitant]
     Dosage: 16 MG, UNK
     Dates: start: 20100819, end: 20100822
  2. ANTITHROMBOTIC AGENTS [Concomitant]
     Indication: THROMBOSIS PROPHYLAXIS
  3. VELCADE [Suspect]
     Indication: MULTIPLE MYELOMA
     Dosage: 1.3 MG, UNK
     Route: 042
     Dates: start: 20101011, end: 20101021
  4. THALIDOMIDE [Concomitant]
     Indication: MULTIPLE MYELOMA
     Dosage: 200 MG, UNK
     Route: 048
     Dates: start: 20091029
  5. DEXAMETHASONE [Suspect]
     Indication: MULTIPLE MYELOMA
     Dosage: 20 MG, UNK
     Route: 048
     Dates: start: 20101011, end: 20101021
  6. THALIDOMIDE [Concomitant]
     Dosage: 50 UNK, UNK
     Route: 048
     Dates: start: 20100819, end: 20100929
  7. MELPHALAN [Concomitant]
     Indication: MULTIPLE MYELOMA
     Dosage: 18 UNK, UNK
     Dates: start: 20091029
  8. PREDNISONE [Concomitant]
     Indication: MULTIPLE MYELOMA
     Dosage: 150 MG, UNK
     Route: 065
     Dates: start: 20091029
  9. PREDNISONE [Concomitant]
     Dosage: 120 MG, UNK
     Dates: start: 20100819, end: 20100822

REACTIONS (3)
  - PULMONARY HAEMORRHAGE [None]
  - LUNG INFECTION [None]
  - THROMBOCYTOPENIA [None]
